FAERS Safety Report 6165360-2 (Version None)
Quarter: 2009Q2

REPORT INFORMATION
  Report Type: 
  Country: None (occurrence: None)
  Receive Date: 20090423
  Receipt Date: 20090414
  Transmission Date: 20091009
  Serious: Yes (Hospitalization)
  Sender: FDA-Public Use
  Company Number: DE-AVENTIS-200911009DE

PATIENT
  Sex: Female

DRUGS (6)
  1. TAXOTERE [Suspect]
     Dosage: DOSE: NOT REPORTED
  2. PEGFILGRASTIM [Suspect]
     Indication: CHEMOTHERAPY
     Dosage: DOSE: NOT REPORTED
  3. FLUOROURACIL [Concomitant]
     Dosage: DOSE: NOT REPORTED
  4. EPIRUBICIN [Concomitant]
     Dosage: DOSE: NOT REPORTED
  5. CYCLOPHOSPHAMIDE [Concomitant]
     Dosage: DOSE: NOT REPORTED
  6. TRASTUZUMAB [Concomitant]
     Dosage: DOSE: NOT REPORTED

REACTIONS (1)
  - LEUKOCYTOCLASTIC VASCULITIS [None]
